FAERS Safety Report 5123299-5 (Version None)
Quarter: 2006Q4

REPORT INFORMATION
  Report Type: 
  Country: None (occurrence: None)
  Receive Date: 20061009
  Receipt Date: 20061002
  Transmission Date: 20070319
  Serious: Yes (Hospitalization)
  Sender: FDA-Public Use
  Company Number: HR-GLAXOSMITHKLINE-B0441232A

PATIENT
  Age: 4 Year
  Sex: Female

DRUGS (3)
  1. LAMOTRIGINE [Suspect]
     Indication: EPILEPSY
     Dates: start: 20060823, end: 20060914
  2. APILEPSIN [Concomitant]
     Dosage: 45MG PER DAY
     Dates: start: 20030101
  3. CLONAZEPAM [Concomitant]
     Dosage: 1G PER DAY
     Dates: start: 20030101

REACTIONS (5)
  - LYMPHADENOPATHY [None]
  - PSEUDOMONONUCLEOSIS [None]
  - PYREXIA [None]
  - RASH MACULO-PAPULAR [None]
  - SPLENOMEGALY [None]
